FAERS Safety Report 21134017 (Version 2)
Quarter: 2022Q3

REPORT INFORMATION
  Report Type: Spontaneous
  Country: AR (occurrence: AR)
  Receive Date: 20220726
  Receipt Date: 20220919
  Transmission Date: 20221027
  Serious: No
  Sender: FDA-Public Use
  Company Number: AR-PFIZER INC-PV202200021159

PATIENT
  Age: 5 Year
  Sex: Male

DRUGS (1)
  1. GENOTROPIN [Suspect]
     Active Substance: SOMATROPIN
     Dosage: 0.6 TO 1MG, 6 TIMES A WEEK
     Dates: start: 20210830

REACTIONS (3)
  - Drug dose omission by device [Recovered/Resolved]
  - Device occlusion [Recovered/Resolved]
  - Product dose omission issue [Recovered/Resolved]
